FAERS Safety Report 5886227-0 (Version None)
Quarter: 2008Q3

REPORT INFORMATION
  Report Type: 
  Country: None (occurrence: None)
  Receive Date: 20080917
  Receipt Date: 20080903
  Transmission Date: 20090109
  Serious: Yes (Hospitalization)
  Sender: FDA-Public Use
  Company Number: FR-ELI_LILLY_AND_COMPANY-FR200809000940

PATIENT
  Age: 51 Year
  Sex: Male

DRUGS (1)
  1. GEMZAR [Suspect]
     Indication: ADENOCARCINOMA PANCREAS
     Dates: end: 20080821

REACTIONS (2)
  - FEBRILE BONE MARROW APLASIA [None]
  - HAEMOLYTIC URAEMIC SYNDROME [None]
